FAERS Safety Report 21928549 (Version 1)
Quarter: 2023Q1

REPORT INFORMATION
  Report Type: Spontaneous
  Country: US (occurrence: US)
  Receive Date: 20230130
  Receipt Date: 20230130
  Transmission Date: 20230418
  Serious: No
  Sender: FDA-Public Use
  Company Number: US-drreddys-SPO/USA/22/0158726

PATIENT
  Age: 90 Year
  Sex: Female

DRUGS (18)
  1. LENALIDOMIDE [Suspect]
     Active Substance: LENALIDOMIDE
     Indication: Plasma cell myeloma
     Dosage: TAKE 1 CAPSULE BY MOUTH EVERY DAY FOR 14 DAYS THEN 7 DAYS OFF
     Route: 048
     Dates: start: 20221104
  2. FAMOTIDINE TAB 20MG [Concomitant]
     Indication: Product used for unknown indication
  3. Metoprolol Succinate TB2 25MG [Concomitant]
     Indication: Product used for unknown indication
  4. PANTOPRAZOLE SODIUM [Concomitant]
     Active Substance: PANTOPRAZOLE SODIUM
     Indication: Product used for unknown indication
  5. POTASSIUM CH PAC 20MEQ [Concomitant]
     Indication: Product used for unknown indication
  6. LIDOCAINE CRE 4 percent [Concomitant]
     Indication: Product used for unknown indication
  7. VELCADE SOL 3.5MG [Concomitant]
     Indication: Product used for unknown indication
  8. ASPIRIN TBE 81MG [Concomitant]
     Indication: Product used for unknown indication
  9. DOCUSATE SOD CAP 100MG [Concomitant]
     Indication: Product used for unknown indication
  10. MAGNESIUM TAB 400MG [Concomitant]
     Indication: Product used for unknown indication
  11. MIRALAX POW 17GM/SCOOP [Concomitant]
     Indication: Product used for unknown indication
  12. VITAMIN B 12 TAB 500MCG [Concomitant]
     Indication: Product used for unknown indication
  13. ACYCLOVI TAB 400MG [Concomitant]
     Indication: Product used for unknown indication
  14. ESCITALOPRAM [Concomitant]
     Active Substance: ESCITALOPRAM OXALATE
     Indication: Product used for unknown indication
  15. FLUTICASONE SUS 50MCG/AC [Concomitant]
     Indication: Product used for unknown indication
  16. FUROSEMIDE TAB 20MG [Concomitant]
     Indication: Product used for unknown indication
  17. GABAPENTIN [Concomitant]
     Active Substance: GABAPENTIN
     Indication: Product used for unknown indication
  18. REVLIMID CAP 5MG [Concomitant]
     Indication: Product used for unknown indication

REACTIONS (2)
  - Urinary tract infection [Unknown]
  - Product use issue [Unknown]
